FAERS Safety Report 21939960 (Version 1)
Quarter: 2023Q1

REPORT INFORMATION
  Report Type: Report from Study
  Country: US (occurrence: US)
  Receive Date: 20230201
  Receipt Date: 20230201
  Transmission Date: 20230418
  Serious: No
  Sender: FDA-Public Use
  Company Number: US-EXELIXIS-CABO-22049340

PATIENT
  Age: 43 Year
  Sex: Female

DRUGS (12)
  1. CABOMETYX [Suspect]
     Active Substance: CABOZANTINIB S-MALATE
     Indication: Metastatic malignant melanoma
     Dosage: 40 MG, QD
     Route: 048
     Dates: start: 20220131, end: 20220402
  2. CABOMETYX [Suspect]
     Active Substance: CABOZANTINIB S-MALATE
     Indication: Metastases to central nervous system
  3. CABOMETYX [Suspect]
     Active Substance: CABOZANTINIB S-MALATE
     Indication: Metastases to bone
  4. TAXOL [Suspect]
     Active Substance: PACLITAXEL
     Indication: Metastatic malignant melanoma
     Dosage: UNK, Q1 WEEK X3 IN A 4-WEEK CYCLE
     Route: 042
     Dates: end: 20220209
  5. TAXOL [Suspect]
     Active Substance: PACLITAXEL
     Indication: Metastases to central nervous system
  6. TAXOL [Suspect]
     Active Substance: PACLITAXEL
     Indication: Metastases to bone
  7. CARBOPLATIN [Suspect]
     Active Substance: CARBOPLATIN
     Indication: Metastatic malignant melanoma
     Dosage: UNK, Q1 WEEK X3 IN A 4-WEEK CYCLE
     Route: 042
     Dates: end: 20220209
  8. CARBOPLATIN [Suspect]
     Active Substance: CARBOPLATIN
     Indication: Metastases to central nervous system
  9. CARBOPLATIN [Suspect]
     Active Substance: CARBOPLATIN
     Indication: Metastases to bone
  10. OPDIVO [Concomitant]
     Active Substance: NIVOLUMAB
  11. VITAMIN C [Concomitant]
     Active Substance: ASCORBIC ACID
  12. KEPPRA [Concomitant]
     Active Substance: LEVETIRACETAM

REACTIONS (15)
  - Pyrexia [Recovering/Resolving]
  - Night sweats [Recovering/Resolving]
  - Blood creatinine decreased [Not Recovered/Not Resolved]
  - Skin ulcer [Recovering/Resolving]
  - Alopecia [Unknown]
  - Neutrophil count decreased [Not Recovered/Not Resolved]
  - Taste disorder [Not Recovered/Not Resolved]
  - Fatigue [Not Recovered/Not Resolved]
  - Stomatitis [Not Recovered/Not Resolved]
  - Pruritus [Unknown]
  - Dry skin [Unknown]
  - Infusion related reaction [Unknown]
  - Neoplasm [Unknown]
  - Decreased appetite [Unknown]
  - Off label use [Unknown]

NARRATIVE: CASE EVENT DATE: 20220209
